FAERS Safety Report 8043646-4 (Version None)
Quarter: 2012Q1

REPORT INFORMATION
  Report Type: 
  Country: None (occurrence: None)
  Receive Date: 20120112
  Receipt Date: 20120106
  Transmission Date: 20120608
  Serious: Yes (Hospitalization, Other)
  Sender: FDA-Public Use
  Company Number: US-ASTRAZENECA-2012SE01146

PATIENT
  Age: 71 Year
  Sex: Female
  Weight: 64 kg

DRUGS (5)
  1. CALCIUM [Concomitant]
  2. NEXIUM [Suspect]
     Indication: THYROID CYST
     Route: 048
  3. MULTI-VITAMINS [Concomitant]
  4. SYNTHROID [Concomitant]
  5. FOSAMAX [Concomitant]

REACTIONS (8)
  - FALL [None]
  - DRUG DOSE OMISSION [None]
  - OFF LABEL USE [None]
  - OSTEOPENIA [None]
  - DYSPEPSIA [None]
  - HIP FRACTURE [None]
  - PELVIC FRACTURE [None]
  - OSTEOPOROSIS [None]
